FAERS Safety Report 8273948-8 (Version None)
Quarter: 2012Q2

REPORT INFORMATION
  Report Type: 
  Country: None (occurrence: None)
  Receive Date: 20120411
  Receipt Date: 20120402
  Transmission Date: 20120825
  Serious: Yes (Other)
  Sender: FDA-Public Use
  Company Number: CA-FRI-1000029686

PATIENT
  Age: 70 Year
  Sex: Female
  Weight: 81.65 kg

DRUGS (10)
  1. CELEXA [Suspect]
     Dosage: 40 MG
     Route: 048
  2. MULTI-VITAMINS [Concomitant]
  3. CALCIUM CARBONATE [Concomitant]
  4. NAPROXEN [Concomitant]
  5. VITAMIN D [Concomitant]
  6. VITAMIN K TAB [Concomitant]
  7. LORAZEPAM [Concomitant]
  8. VISIONEX [Concomitant]
  9. APO-TRIAZIDE [Concomitant]
  10. ASCORBIC ACID [Concomitant]

REACTIONS (10)
  - HEART RATE IRREGULAR [None]
  - MYOCARDIAL INFARCTION [None]
  - SOMNOLENCE [None]
  - PALPITATIONS [None]
  - SYNCOPE [None]
  - ANGINA PECTORIS [None]
  - DIZZINESS [None]
  - ASTHENIA [None]
  - DYSPNOEA [None]
  - FATIGUE [None]
